FAERS Safety Report 8180641-9 (Version None)
Quarter: 2012Q1

REPORT INFORMATION
  Report Type: 
  Country: None (occurrence: None)
  Receive Date: 20120302
  Receipt Date: 20120227
  Transmission Date: 20120608
  Serious: Yes (Other)
  Sender: FDA-Public Use
  Company Number: US-ROCHE-1043940

PATIENT
  Sex: Female

DRUGS (1)
  1. BONIVA [Suspect]
     Indication: OSTEOPOROSIS

REACTIONS (5)
  - SCOLIOSIS [None]
  - OSTEOPOROSIS [None]
  - FALL [None]
  - DYSPHAGIA [None]
  - MEMORY IMPAIRMENT [None]
